FAERS Safety Report 6011842-3 (Version None)
Quarter: 2008Q4

REPORT INFORMATION
  Report Type: 
  Country: None (occurrence: None)
  Receive Date: 20081218
  Receipt Date: 20081203
  Transmission Date: 20090506
  Serious: Yes (Other)
  Sender: FDA-Public Use
  Company Number: US-ASTRAZENECA-2008UW28113

PATIENT
  Age: 51 Year
  Sex: Female

DRUGS (4)
  1. CRESTOR [Suspect]
     Indication: BLOOD CHOLESTEROL INCREASED
     Dosage: 10 MG
     Route: 048
     Dates: start: 20030101
  2. M.V.I. [Concomitant]
  3. COENZYME Q10 [Concomitant]
  4. VIT D [Concomitant]

REACTIONS (2)
  - MYALGIA [None]
  - ROAD TRAFFIC ACCIDENT [None]
